FAERS Safety Report 19661060 (Version 2)
Quarter: 2021Q3

REPORT INFORMATION
  Report Type: Spontaneous
  Country: US (occurrence: US)
  Receive Date: 20210805
  Receipt Date: 20210916
  Transmission Date: 20211014
  Serious: Yes (Other)
  Sender: FDA-Public Use
  Company Number: US-GLENMARK PHARMACEUTICALS-2021GMK066969

PATIENT

DRUGS (1)
  1. TELMISARTAN TABLETS USP, 80 MG [Suspect]
     Active Substance: TELMISARTAN
     Indication: PRODUCT USED FOR UNKNOWN INDICATION
     Dosage: UNK, EVERY EVENING
     Route: 048
     Dates: start: 2011

REACTIONS (4)
  - Product residue present [Unknown]
  - Product use complaint [Unknown]
  - Product coating issue [Unknown]
  - Choking [Unknown]
